FAERS Safety Report 9338751 (Version 1)
Quarter: 2013Q2

REPORT INFORMATION
  Report Type: Spontaneous
  Country: US (occurrence: None)
  Receive Date: 20130605
  Receipt Date: 20130605
  Transmission Date: 20140414
  Serious: Yes (Hospitalization)
  Sender: FDA-Public Use
  Company Number: None

PATIENT
  Age: 86 Year
  Sex: Female
  Weight: 58 kg

DRUGS (2)
  1. INVANZ [Suspect]
     Route: 041
     Dates: start: 20130522, end: 20130528
  2. INVANZ 1 GRAM [Concomitant]

REACTIONS (1)
  - Convulsion [None]
